FAERS Safety Report 14946858 (Version 1)
Quarter: 2018Q2

REPORT INFORMATION
  Report Type: Spontaneous
  Country: FR (occurrence: FR)
  Receive Date: 20180529
  Receipt Date: 20180529
  Transmission Date: 20180711
  Serious: Yes (Other)
  Sender: FDA-Public Use
  Company Number: FR-MERCK KGAA-2048576

PATIENT
  Age: 68 Year
  Sex: Female
  Weight: 64 kg

DRUGS (1)
  1. NOVOTHYROX [Suspect]
     Active Substance: LEVOTHYROXINE SODIUM
     Indication: PRODUCT USED FOR UNKNOWN INDICATION

REACTIONS (24)
  - Anxiety [None]
  - Asthenia [None]
  - Anger [None]
  - Depression [None]
  - Mood swings [None]
  - Premature ageing [None]
  - Headache [None]
  - Insomnia [None]
  - Respiratory distress [None]
  - Fatigue [None]
  - Vision blurred [None]
  - Loss of personal independence in daily activities [None]
  - Bradykinesia [None]
  - Hypertension [Recovered/Resolved]
  - Hyperhidrosis [None]
  - Myalgia [None]
  - Loss of libido [None]
  - Crying [None]
  - Gait inability [None]
  - Pain [None]
  - Social avoidant behaviour [None]
  - Malaise [None]
  - Dizziness [None]
  - Alopecia [None]

NARRATIVE: CASE EVENT DATE: 201704
